FAERS Safety Report 7770766 (Version 3)
Quarter: 2013Q4

REPORT INFORMATION
  Report Type: Spontaneous
  Country: US (occurrence: US)
  Receive Date: 20110124
  Receipt Date: 20131219
  Transmission Date: 20140711
  Serious: Yes (Hospitalization, Other)
  Sender: FDA-Public Use
  Company Number: US-ROCHE-731052

PATIENT
  Age: 61 Year
  Sex: Male
  Weight: 76.2 kg

DRUGS (1)
  1. ACCUTANE [Suspect]
     Indication: ACNE
     Route: 065
     Dates: start: 198501, end: 198509

REACTIONS (13)
  - Crohn^s disease [Unknown]
  - Small intestinal obstruction [Unknown]
  - Gastrointestinal injury [Unknown]
  - Fistula [Unknown]
  - Ileal stenosis [Unknown]
  - Ileal fistula [Unknown]
  - Pulmonary embolism [Unknown]
  - Deep vein thrombosis [Unknown]
  - Large intestine polyp [Unknown]
  - Oral herpes [Unknown]
  - Depression [Unknown]
  - Nephrolithiasis [Unknown]
  - Ileus [Unknown]
